FAERS Safety Report 7464741-4 (Version None)
Quarter: 2011Q2

REPORT INFORMATION
  Report Type: 
  Country: None (occurrence: None)
  Receive Date: 20110509
  Receipt Date: 20110429
  Transmission Date: 20111010
  Serious: Yes (Hospitalization)
  Sender: FDA-Public Use
  Company Number: US-US-EMD SERONO, INC.-7053094

PATIENT
  Sex: Female

DRUGS (2)
  1. REBIF [Suspect]
     Indication: RELAPSING-REMITTING MULTIPLE SCLEROSIS
     Route: 058
     Dates: start: 20110310, end: 20110404
  2. REBIF [Suspect]
     Indication: PRODUCT USED FOR UNKNOWN INDICATION
     Route: 058
     Dates: start: 20110404

REACTIONS (7)
  - SENSATION OF FOREIGN BODY [None]
  - GAIT DISTURBANCE [None]
  - HYPOAESTHESIA ORAL [None]
  - VISION BLURRED [None]
  - INJECTION SITE ERYTHEMA [None]
  - MIGRAINE [None]
  - INFLUENZA LIKE ILLNESS [None]
